FAERS Safety Report 11102089 (Version 1)
Quarter: 2015Q2

REPORT INFORMATION
  Report Type: Report from Study
  Country: FR (occurrence: FR)
  Receive Date: 20150511
  Receipt Date: 20150511
  Transmission Date: 20150821
  Serious: Yes (Life-Threatening, Hospitalization, Other)
  Sender: FDA-Public Use
  Company Number: FR-ROCHE-1171791

PATIENT
  Age: 50 Year
  Sex: Female

DRUGS (19)
  1. RITUXIMAB [Suspect]
     Active Substance: RITUXIMAB
     Route: 042
     Dates: start: 20051011
  2. METHOTREXATE [Concomitant]
     Active Substance: METHOTREXATE
     Route: 065
  3. TOCILIZUMAB [Suspect]
     Active Substance: TOCILIZUMAB
     Indication: RHEUMATOID ARTHRITIS
     Route: 042
     Dates: start: 20101027, end: 20140408
  4. ETANERCEPT [Concomitant]
     Active Substance: ETANERCEPT
  5. SPECIAFOLDINE [Concomitant]
     Active Substance: FOLIC ACID
  6. IMOVANE [Concomitant]
     Active Substance: ZOPICLONE
  7. RIVOTRIL [Concomitant]
     Active Substance: CLONAZEPAM
  8. EFFERALGAN [Concomitant]
     Active Substance: ACETAMINOPHEN
  9. RITUXIMAB [Suspect]
     Active Substance: RITUXIMAB
     Route: 042
     Dates: start: 20060707
  10. METHOTREXATE [Concomitant]
     Active Substance: METHOTREXATE
     Route: 065
  11. CORTANCYL [Concomitant]
     Active Substance: PREDNISONE
     Route: 065
  12. ATACAND [Concomitant]
     Active Substance: CANDESARTAN CILEXETIL
  13. MYOLASTAN [Concomitant]
     Active Substance: TETRAZEPAM
  14. CODEIN [Concomitant]
     Active Substance: CODEINE
  15. CORTANCYL [Concomitant]
     Active Substance: PREDNISONE
     Route: 065
  16. RITUXIMAB [Suspect]
     Active Substance: RITUXIMAB
     Indication: RHEUMATOID ARTHRITIS
     Route: 042
     Dates: start: 20050927
  17. RITUXIMAB [Suspect]
     Active Substance: RITUXIMAB
     Route: 042
     Dates: start: 20060721, end: 20060721
  18. METHOTREXATE (METHOTREXATE SODIUM) [Concomitant]
     Active Substance: METHOTREXATE SODIUM
  19. INEXIUM [Concomitant]
     Active Substance: ESOMEPRAZOLE

REACTIONS (17)
  - Gastrointestinal infection [Recovered/Resolved]
  - Cholestasis [Not Recovered/Not Resolved]
  - Gastroenteritis [Recovered/Resolved]
  - Pancreatitis acute [Unknown]
  - Carpal tunnel syndrome [Not Recovered/Not Resolved]
  - Nasopharyngitis [Recovered/Resolved]
  - Major depression [Not Recovered/Not Resolved]
  - Rhinorrhoea [Not Recovered/Not Resolved]
  - Suicide attempt [Not Recovered/Not Resolved]
  - Cellulitis [Recovered/Resolved]
  - Post procedural infection [Unknown]
  - Bursitis [Unknown]
  - Pyrexia [Recovered/Resolved]
  - Bronchitis [Recovered/Resolved]
  - Hepatocellular injury [Unknown]
  - Abdominal pain [Recovered/Resolved]
  - Cough [Unknown]

NARRATIVE: CASE EVENT DATE: 200702
